FAERS Safety Report 11269682 (Version 1)
Quarter: 2015Q3

REPORT INFORMATION
  Report Type: Report from Study
  Country: GB (occurrence: GB)
  Receive Date: 20150714
  Receipt Date: 20150714
  Transmission Date: 20151125
  Serious: Yes (Other)
  Sender: FDA-Public Use
  Company Number: PHFR2015GB005095

PATIENT
  Age: 41 Year
  Sex: Female

DRUGS (1)
  1. GILENYA [Suspect]
     Active Substance: FINGOLIMOD HYDROCHLORIDE
     Indication: RELAPSING-REMITTING MULTIPLE SCLEROSIS
     Dosage: 0.5 MG, UNK
     Route: 065
     Dates: start: 20131119, end: 20140320

REACTIONS (11)
  - Pain [Unknown]
  - Suicidal ideation [Unknown]
  - Muscular weakness [Unknown]
  - Condition aggravated [Unknown]
  - Alanine aminotransferase increased [Unknown]
  - Depressed mood [Unknown]
  - Lymphocyte count decreased [Unknown]
  - Fatigue [Unknown]
  - Contusion [Unknown]
  - Fall [Unknown]
  - Pain in extremity [Unknown]

NARRATIVE: CASE EVENT DATE: 20131119
